FAERS Safety Report 13486200 (Version 2)
Quarter: 2017Q4

REPORT INFORMATION
  Report Type: Spontaneous
  Country: US (occurrence: US)
  Receive Date: 20170426
  Receipt Date: 20171027
  Transmission Date: 20180320
  Serious: Yes (Hospitalization, Other)
  Sender: FDA-Public Use
  Company Number: US-009507513-1109USA00848

PATIENT
  Sex: Female
  Weight: 63.5 kg

DRUGS (13)
  1. CELEBREX [Concomitant]
     Active Substance: CELECOXIB
     Route: 048
     Dates: start: 1996
  2. MK-9278 [Concomitant]
     Active Substance: VITAMINS
     Route: 048
  3. FOSAMAX PLUS D [Suspect]
     Active Substance: ALENDRONATE SODIUM\CHOLECALCIFEROL
     Indication: OSTEOPOROSIS
     Dosage: 70 MG, QW
     Route: 048
     Dates: start: 2005, end: 20090713
  4. ALENDRONATE SODIUM. [Suspect]
     Active Substance: ALENDRONATE SODIUM
     Dosage: 70 MG, QW
     Route: 048
     Dates: start: 20130906, end: 20140711
  5. PREMARIN [Concomitant]
     Active Substance: ESTROGENS, CONJUGATED
     Dosage: .625 MG, QD
     Route: 065
  6. PROVERA [Concomitant]
     Active Substance: MEDROXYPROGESTERONE ACETATE
     Dosage: 2.5 MG, QD
     Route: 065
  7. CALCIUM (UNSPECIFIED) [Concomitant]
     Active Substance: CALCIUM
     Indication: OSTEOPOROSIS
     Route: 065
  8. FOSAMAX [Suspect]
     Active Substance: ALENDRONATE SODIUM
     Dosage: 70 MG, QW
     Route: 048
     Dates: start: 200010, end: 20030813
  9. FOSAMAX [Suspect]
     Active Substance: ALENDRONATE SODIUM
     Indication: OSTEOPOROSIS
     Dosage: 10 MG, QD
     Route: 048
     Dates: start: 199510, end: 200010
  10. FORTEO [Concomitant]
     Active Substance: TERIPARATIDE
     Indication: OSTEOPOROSIS
     Route: 065
     Dates: start: 200306, end: 200506
  11. FOSAMAX [Suspect]
     Active Substance: ALENDRONATE SODIUM
     Route: 048
  12. ASPIRIN. [Concomitant]
     Active Substance: ASPIRIN
     Route: 048
  13. VITAMIN D [Concomitant]
     Active Substance: CHOLECALCIFEROL
     Indication: OSTEOPOROSIS
     Route: 065

REACTIONS (116)
  - Depression [Unknown]
  - Fall [Unknown]
  - Gout [Unknown]
  - Urinary incontinence [Unknown]
  - Cataract [Unknown]
  - Osteoarthritis [Unknown]
  - Dyspnoea exertional [Unknown]
  - Fracture malunion [Unknown]
  - Osteoarthritis [Unknown]
  - Post procedural complication [Unknown]
  - Poor dental condition [Unknown]
  - Pneumonia [Unknown]
  - Gastritis [Unknown]
  - Spinal osteoarthritis [Unknown]
  - Gouty arthritis [Unknown]
  - Compression fracture [Unknown]
  - Bronchitis [Recovering/Resolving]
  - Femur fracture [Recovered/Resolved]
  - Tooth disorder [Unknown]
  - Angina unstable [Unknown]
  - Macular degeneration [Unknown]
  - Morton^s neuralgia [Unknown]
  - Confusional state [Unknown]
  - Limb crushing injury [Unknown]
  - Excoriation [Unknown]
  - Spinal cord injury cervical [Unknown]
  - Dry mouth [Unknown]
  - Facial bones fracture [Unknown]
  - Vomiting [Unknown]
  - Epistaxis [Unknown]
  - Face injury [Unknown]
  - Excoriation [Recovering/Resolving]
  - Hernia [Unknown]
  - Weight decreased [Unknown]
  - Osteoarthritis [Unknown]
  - Rheumatoid arthritis [Not Recovered/Not Resolved]
  - Gait disturbance [Unknown]
  - Tendon disorder [Unknown]
  - Joint injury [Unknown]
  - Anxiety [Unknown]
  - Cataract nuclear [Unknown]
  - Insomnia [Unknown]
  - Contusion [Recovering/Resolving]
  - Limb crushing injury [Unknown]
  - Herpes zoster [Unknown]
  - Herpes zoster [Unknown]
  - Stress fracture [Unknown]
  - Humerus fracture [Unknown]
  - Incontinence [Unknown]
  - Memory impairment [Unknown]
  - Weight increased [Unknown]
  - Muscular weakness [Unknown]
  - Balance disorder [Unknown]
  - Dyspnoea [Unknown]
  - Mediastinal disorder [Not Recovered/Not Resolved]
  - Neck pain [Unknown]
  - Restrictive pulmonary disease [Not Recovered/Not Resolved]
  - Mitral valve incompetence [Not Recovered/Not Resolved]
  - Drug hypersensitivity [Unknown]
  - Anaemia [Recovered/Resolved]
  - Osteoarthritis [Unknown]
  - Hypoacusis [Unknown]
  - Osteoarthritis [Unknown]
  - Head injury [Unknown]
  - Spinal osteoarthritis [Unknown]
  - Tooth disorder [Unknown]
  - Musculoskeletal chest pain [Unknown]
  - Fatigue [Unknown]
  - Cardiac murmur [Unknown]
  - Haemorrhoids [Unknown]
  - Atrial fibrillation [Unknown]
  - Ileus [Unknown]
  - Musculoskeletal chest pain [Unknown]
  - Fall [Unknown]
  - Kyphosis [Unknown]
  - Muscle strain [Unknown]
  - Cardiac disorder [Unknown]
  - Arteriosclerosis coronary artery [Unknown]
  - Fibula fracture [Unknown]
  - Bone contusion [Unknown]
  - Cervical spinal stenosis [Unknown]
  - Neurological symptom [Unknown]
  - Osteoporotic fracture [Unknown]
  - Adverse drug reaction [Recovered/Resolved]
  - Hyperhidrosis [Not Recovered/Not Resolved]
  - Ophthalmic herpes zoster [Unknown]
  - Hypercholesterolaemia [Unknown]
  - Fractured sacrum [Unknown]
  - Muscle strain [Unknown]
  - Muscle strain [Unknown]
  - Chronotropic incompetence [Unknown]
  - Sinus node dysfunction [Unknown]
  - Oral pain [Recovered/Resolved]
  - Femur fracture [Unknown]
  - Muscular weakness [Unknown]
  - Hypertension [Unknown]
  - Osteoarthritis [Unknown]
  - Post procedural complication [Unknown]
  - Urticaria [Recovering/Resolving]
  - Breast disorder [Unknown]
  - Cough [Not Recovered/Not Resolved]
  - Adjustment disorder [Unknown]
  - Epistaxis [Unknown]
  - Atrioventricular block second degree [Unknown]
  - Joint dislocation [Unknown]
  - Tooth disorder [Unknown]
  - Gastrooesophageal reflux disease [Unknown]
  - Exostosis [Unknown]
  - Intestinal obstruction [Unknown]
  - Myelopathy [Unknown]
  - Headache [Unknown]
  - Myocardial ischaemia [Unknown]
  - Nocturia [Unknown]
  - Nerve compression [Unknown]
  - Drug ineffective [Unknown]
  - Sjogren^s syndrome [Unknown]

NARRATIVE: CASE EVENT DATE: 1996
